FAERS Safety Report 6452940-X (Version None)
Quarter: 2009Q4

REPORT INFORMATION
  Report Type: 
  Country: None (occurrence: None)
  Receive Date: 20091124
  Receipt Date: 20091117
  Transmission Date: 20100525
  Serious: Yes (Other)
  Sender: FDA-Public Use
  Company Number: US-TYCO HEALTHCARE/MALLINCKRODT-T200901966

PATIENT

DRUGS (3)
  1. CONRAY [Suspect]
     Indication: X-RAY
     Dosage: 1 ML, SINGLE
     Route: 014
     Dates: start: 20091001, end: 20091001
  2. BUPIVACAINE HYDROCHLORIDE W/EPINEPHRINE [Suspect]
     Dosage: 4 ML, (0.5%/1:200,000)
     Route: 014
     Dates: start: 20091001, end: 20091001
  3. DEPO-MEDROL [Suspect]
     Dosage: 40 MG, SINGLE
     Route: 014
     Dates: start: 20091001, end: 20091001

REACTIONS (1)
  - INJECTION SITE INFECTION [None]
